FAERS Safety Report 20628701 (Version 5)
Quarter: 2022Q3

REPORT INFORMATION
  Report Type: Report from Study
  Country: FR (occurrence: None)
  Receive Date: 20220323
  Receipt Date: 20220704
  Transmission Date: 20221026
  Serious: Yes (Hospitalization)
  Sender: FDA-Public Use
  Company Number: 2022A119623

PATIENT
  Age: 69 Year
  Sex: Female
  Weight: 71.5 kg

DRUGS (19)
  1. EVUSHELD [Suspect]
     Active Substance: CILGAVIMAB\TIXAGEVIMAB
     Indication: COVID-19 treatment
     Dosage: 1.0DF ONCE/SINGLE ADMINISTRATION
     Route: 042
     Dates: start: 20211208, end: 20211208
  2. EVUSHELD [Suspect]
     Active Substance: CILGAVIMAB\TIXAGEVIMAB
     Indication: COVID-19 treatment
     Dosage: 300.0MG UNKNOWN
     Route: 042
     Dates: start: 20220128
  3. COMIRNATY [Suspect]
     Active Substance: TOZINAMERAN
     Indication: COVID-19 immunisation
     Route: 030
     Dates: start: 20210325
  4. COMIRNATY [Suspect]
     Active Substance: TOZINAMERAN
     Indication: COVID-19 immunisation
     Route: 030
     Dates: start: 20210422
  5. COMIRNATY [Suspect]
     Active Substance: TOZINAMERAN
     Indication: COVID-19 immunisation
     Dosage: 1.0DF ONCE/SINGLE ADMINISTRATION
     Route: 030
     Dates: start: 20211130, end: 20211130
  6. MYFORTIC [Concomitant]
     Active Substance: MYCOPHENOLATE SODIUM
     Dosage: 180 MG 1 IN THE MORNING AND 1 IN THE EVENING
  7. TACROLIMUS [Concomitant]
     Active Substance: TACROLIMUS
     Dosage: 7 MG 1 AT NOON
  8. SOLUPRED [Concomitant]
     Dosage: 5 MG 1 IN THE MORNING
  9. BACTRIM [Concomitant]
     Active Substance: SULFAMETHOXAZOLE\TRIMETHOPRIM
     Dosage: 400/80 MG 1 IN THE MORNING
  10. KARDEGIC [Concomitant]
     Active Substance: ASPIRIN DL-LYSINE
     Indication: Prophylaxis
     Dosage: 75 MG 1 AT NOON
  11. ACEBUTOLOL [Concomitant]
     Active Substance: ACEBUTOLOL
     Dosage: 200 MG 1 IN THE MORNING
  12. AMLODIPINE BESYLATE [Concomitant]
     Active Substance: AMLODIPINE BESYLATE
     Dosage: 10 MG 1 AT NOON
  13. PRAVASTATIN [Concomitant]
     Active Substance: PRAVASTATIN
     Dosage: 20 MG 1 IN THE EVENING
  14. LANTUS [Concomitant]
     Active Substance: INSULIN GLARGINE
     Dosage: 20 UI 1 IN THE MORNING
  15. VILDAGLIPTIN [Concomitant]
     Active Substance: VILDAGLIPTIN
     Dosage: 50 MG 1 IN THE MORNING AND 1 IN THE EVENING
  16. REPAGLINIDE [Concomitant]
     Active Substance: REPAGLINIDE
     Dosage: 0.5 MG 1 AT NOON AND 1 IN THE EVENING
  17. BENSERAZIDE HYDROCHLORIDE\LEVODOPA [Concomitant]
     Active Substance: BENSERAZIDE HYDROCHLORIDE\LEVODOPA
     Dosage: 125 MG 5 TIMES A DAY
  18. CINACALCET HYDROCHLORIDE [Concomitant]
     Active Substance: CINACALCET HYDROCHLORIDE
     Dosage: 60 MG 1 IN THE MORNING
  19. MAGNESPASMYL [Concomitant]
     Dosage: 47.7 MG 2 IN THE MORNING, 2 AT NOON AND 2 IN THE EVENING

REACTIONS (4)
  - Condition aggravated [Not Recovered/Not Resolved]
  - COVID-19 [Not Recovered/Not Resolved]
  - Vaccination failure [Not Recovered/Not Resolved]
  - Off label use [Unknown]

NARRATIVE: CASE EVENT DATE: 20220119
